FAERS Safety Report 11489599 (Version 1)
Quarter: 2015Q3

REPORT INFORMATION
  Report Type: Spontaneous
  Country: SK (occurrence: SK)
  Receive Date: 20150910
  Receipt Date: 20150910
  Transmission Date: 20151125
  Serious: Yes (Life-Threatening, Hospitalization)
  Sender: FDA-Public Use
  Company Number: SK-SA-2015SA136921

PATIENT
  Age: 84 Year
  Sex: Male
  Weight: 82 kg

DRUGS (11)
  1. ATORVASTATIN [Concomitant]
     Active Substance: ATORVASTATIN
     Indication: TYPE V HYPERLIPIDAEMIA
     Route: 048
     Dates: end: 20150820
  2. FUROSEMIDE. [Concomitant]
     Active Substance: FUROSEMIDE
     Indication: CARDIAC FAILURE
     Route: 048
     Dates: end: 20150820
  3. DIGOXIN. [Suspect]
     Active Substance: DIGOXIN
     Indication: HYPERTENSIVE HEART DISEASE
     Dosage: LONG TERM?5 EVERY 1 (WEEKS)
     Route: 048
     Dates: end: 20150820
  4. SPIRONOLACTONE. [Suspect]
     Active Substance: SPIRONOLACTONE
     Indication: CARDIAC FAILURE
     Dosage: LONG TERM
     Route: 048
     Dates: end: 20150820
  5. TRIMETAZIDINE [Concomitant]
     Active Substance: TRIMETAZIDINE
     Indication: MYOCARDIAL ISCHAEMIA
     Dosage: LONG TERM
  6. CLOPIDOGREL [Concomitant]
     Active Substance: CLOPIDOGREL BISULFATE
     Indication: MYOCARDIAL ISCHAEMIA
     Route: 048
     Dates: end: 20150820
  7. NADROPARIN [Concomitant]
     Active Substance: NADROPARIN
     Indication: ATRIAL FIBRILLATION
     Route: 058
     Dates: start: 20150726
  8. IRBESARTAN. [Suspect]
     Active Substance: IRBESARTAN
     Indication: ATRIAL FIBRILLATION
     Dosage: LONG TERM
     Route: 048
     Dates: end: 20150820
  9. KALDYUM [Suspect]
     Active Substance: POTASSIUM CHLORIDE
     Indication: HYPOKALAEMIA
     Route: 048
     Dates: start: 20150726, end: 20150820
  10. MOLSIDOMINE [Concomitant]
     Active Substance: MOLSIDOMINE
     Indication: MYOCARDIAL ISCHAEMIA
     Dosage: LONG TERM
     Route: 048
  11. INSUMAN COMB [Concomitant]
     Active Substance: INSULIN NOS
     Indication: INSULIN-REQUIRING TYPE 2 DIABETES MELLITUS
     Dosage: LONG TERM
     Route: 058

REACTIONS (5)
  - Metabolic acidosis [Recovered/Resolved]
  - Hyperkalaemia [Recovered/Resolved]
  - Somnolence [Recovered/Resolved]
  - Asthenia [Recovered/Resolved]
  - Nodal rhythm [Recovered/Resolved]

NARRATIVE: CASE EVENT DATE: 20150820
